FAERS Safety Report 6812368-7 (Version None)
Quarter: 2010Q3

REPORT INFORMATION
  Report Type: 
  Country: None (occurrence: None)
  Receive Date: 20100701
  Receipt Date: 20100623
  Transmission Date: 20110219
  Serious: Yes (Other)
  Sender: FDA-Public Use
  Company Number: GR-AMGEN-KDL420006

PATIENT
  Age: 60 Year
  Sex: Female

DRUGS (4)
  1. VECTIBIX [Suspect]
     Indication: COLORECTAL CANCER
  2. LEUCOVORIN CALCIUM [Concomitant]
  3. FLUOROURACIL [Concomitant]
  4. IRINOTECAN HCL [Concomitant]

REACTIONS (2)
  - INFLAMMATION [None]
  - PYREXIA [None]
